FAERS Safety Report 6221761-5 (Version None)
Quarter: 2009Q2

REPORT INFORMATION
  Report Type: 
  Country: None (occurrence: None)
  Receive Date: 20090610
  Receipt Date: 20090528
  Transmission Date: 20091009
  Serious: Yes (Hospitalization, Other)
  Sender: FDA-Public Use
  Company Number: US-ELI_LILLY_AND_COMPANY-US200905005726

PATIENT
  Sex: Female

DRUGS (2)
  1. FORTEO [Suspect]
     Indication: BONE DISORDER
     Dosage: UNK, UNK
     Dates: start: 20071201
  2. PREDNISONE [Concomitant]
     Dates: start: 19690101

REACTIONS (5)
  - DEVICE FAILURE [None]
  - FALL [None]
  - HUMERUS FRACTURE [None]
  - OFF LABEL USE [None]
  - POSTOPERATIVE WOUND INFECTION [None]
